FAERS Safety Report 16737237 (Version 1)
Quarter: 2019Q3

REPORT INFORMATION
  Report Type: Spontaneous
  Country: GB (occurrence: GB)
  Receive Date: 20190823
  Receipt Date: 20190823
  Transmission Date: 20191005
  Serious: Yes (Other)
  Sender: FDA-Public Use
  Company Number: GB-TEVA-2019-GB-1095678

PATIENT
  Age: 74 Year
  Sex: Male

DRUGS (2)
  1. ORAMORPH [Concomitant]
     Active Substance: MORPHINE SULFATE
     Dosage: 1 DOSAGE FORM
     Route: 065
     Dates: start: 20190501
  2. BUPRENORPHINE. [Suspect]
     Active Substance: BUPRENORPHINE
     Indication: PAIN MANAGEMENT
     Dosage: 5 MICROGRAMS PER HOUR
     Route: 062

REACTIONS (3)
  - Slow response to stimuli [Unknown]
  - Incorrect product administration duration [Unknown]
  - Sedation [Unknown]

NARRATIVE: CASE EVENT DATE: 20190502
